FAERS Safety Report 8284427-6 (Version None)
Quarter: 2012Q2

REPORT INFORMATION
  Report Type: 
  Country: None (occurrence: None)
  Receive Date: 20120413
  Receipt Date: 20110526
  Transmission Date: 20120825
  Serious: No
  Sender: FDA-Public Use
  Company Number: US-ASTRAZENECA-2011SE33139

PATIENT
  Age: 24 Year
  Sex: Male

DRUGS (2)
  1. ASACOL HD [Concomitant]
  2. NEXIUM [Suspect]
     Route: 048

REACTIONS (4)
  - NAUSEA [None]
  - NASAL CONGESTION [None]
  - INFLUENZA [None]
  - NASOPHARYNGITIS [None]
